FAERS Safety Report 9818985 (Version 1)
Quarter: 2014Q1

REPORT INFORMATION
  Report Type: Spontaneous
  Country: US (occurrence: US)
  Receive Date: 20140115
  Receipt Date: 20140115
  Transmission Date: 20141002
  Serious: No
  Sender: FDA-Public Use
  Company Number: US-ENDO PHARMACEUTICALS INC.-ENDC20130009

PATIENT
  Sex: Female
  Weight: 59.02 kg

DRUGS (1)
  1. ENDOCET 10MG/325MG [Suspect]
     Indication: OCCUPATIONAL EXPOSURE TO PRODUCT
     Dosage: UNKNOWN
     Route: 065

REACTIONS (4)
  - Erythema [Not Recovered/Not Resolved]
  - Rash [Not Recovered/Not Resolved]
  - Pruritus [Not Recovered/Not Resolved]
  - Occupational exposure to product [Not Recovered/Not Resolved]
